FAERS Safety Report 4991441-2 (Version None)
Quarter: 2006Q2

REPORT INFORMATION
  Report Type: 
  Country: None (occurrence: None)
  Receive Date: 20060504
  Receipt Date: 20060202
  Transmission Date: 20061013
  Serious: Yes (Hospitalization)
  Sender: FDA-Public Use
  Company Number: 2006UW01899

PATIENT
  Age: 3 Year
  Sex: Male
  Weight: 12.7 kg

DRUGS (4)
  1. PULMICORT RESPULES [Suspect]
     Indication: CHEST DISCOMFORT
     Dosage: 0.25 MG/2 MLS BID IH
     Route: 055
     Dates: start: 20050101
  2. PULMICORT RESPULES [Suspect]
     Indication: BRONCHOSPASM
     Dosage: 0.25 MG/2 MLS BID IH
     Route: 055
     Dates: start: 20050101
  3. PULMICORT RESPULES [Suspect]
     Indication: ASTHMA
     Dosage: 0.25 MG/2 MLS BID IH
     Route: 055
     Dates: start: 20050101
  4. XOPENEX [Concomitant]

REACTIONS (14)
  - ABDOMINAL PAIN [None]
  - ABDOMINAL PAIN UPPER [None]
  - BLOOD CREATININE INCREASED [None]
  - DEHYDRATION [None]
  - DIARRHOEA [None]
  - GLYCOSURIA [None]
  - GLYCOSYLATED HAEMOGLOBIN INCREASED [None]
  - HYPERGLYCAEMIA [None]
  - KETONURIA [None]
  - LETHARGY [None]
  - LYMPHADENOPATHY [None]
  - STRESS [None]
  - VOMITING [None]
  - WEIGHT GAIN POOR [None]
